FAERS Safety Report 9377025 (Version 1)
Quarter: 2013Q2

REPORT INFORMATION
  Report Type: Spontaneous
  Country: US (occurrence: None)
  Receive Date: 20130628
  Receipt Date: 20130628
  Transmission Date: 20140414
  Serious: Yes (Other)
  Sender: FDA-Public Use
  Company Number: None

PATIENT
  Age: 52 Year
  Sex: Female
  Weight: 56.7 kg

DRUGS (2)
  1. DALISRESP [Suspect]
     Indication: OBSTRUCTIVE AIRWAYS DISORDER
     Route: 048
     Dates: start: 20130326, end: 20130606
  2. VARIOUS INHALERS [Concomitant]

REACTIONS (2)
  - Oropharyngeal pain [None]
  - Oral mucosal blistering [None]
